FAERS Safety Report 23225392 (Version 1)
Quarter: 2023Q4

REPORT INFORMATION
  Report Type: Report from Study
  Country: IT (occurrence: None)
  Receive Date: 20231124
  Receipt Date: 20231124
  Transmission Date: 20240109
  Serious: Yes (Other)
  Sender: FDA-Public Use
  Company Number: IT-ROCHE-3091318

PATIENT
  Age: 48 Year
  Sex: Female
  Weight: 63 kg

DRUGS (5)
  1. ATEZOLIZUMAB [Suspect]
     Active Substance: ATEZOLIZUMAB
     Indication: HER2 positive breast cancer
     Dosage: LAST DOSE BEFORE SAE 10/DEC/2021, NO OF COURSES 5
     Route: 041
     Dates: start: 20210909
  2. PERTUZUMAB [Suspect]
     Active Substance: PERTUZUMAB
     Indication: HER2 positive breast cancer
     Dosage: LAST DOSE BEFORE SAE 07/01/2022, NO OF COURSES 6
     Route: 042
     Dates: start: 20210909
  3. TRASTUZUMAB [Suspect]
     Active Substance: TRASTUZUMAB
     Indication: HER2 positive breast cancer
     Dosage: LAST DOSE BEFORE SAE 07/01/2022, NO OF COURSES 6
     Route: 041
     Dates: start: 20210909
  4. CARBOPLATIN [Suspect]
     Active Substance: CARBOPLATIN
     Indication: HER2 positive breast cancer
     Dosage: LAST DOSE BEFORE SAE 17/DEC/2021,NO OF COURSES 6?LAST DOSE BEFORE SAE 10/12/2021 (HYPERTRANSAMINASEM
     Route: 042
     Dates: start: 20210909, end: 20220107
  5. PACLITAXEL [Suspect]
     Active Substance: PACLITAXEL
     Indication: HER2 positive breast cancer
     Dosage: NO OF CYCLES: 5
     Route: 042
     Dates: start: 20210909, end: 20211210

REACTIONS (4)
  - Alanine aminotransferase increased [Recovered/Resolved]
  - Aspartate aminotransferase increased [Recovered/Resolved]
  - Hypersensitivity [Recovered/Resolved]
  - Infusion related reaction [Recovered/Resolved]

NARRATIVE: CASE EVENT DATE: 20211217
